FAERS Safety Report 9778015 (Version 1)
Quarter: 2013Q4

REPORT INFORMATION
  Report Type: Spontaneous
  Country: FR (occurrence: FR)
  Receive Date: 20131223
  Receipt Date: 20131223
  Transmission Date: 20140711
  Serious: Yes (Hospitalization, Other)
  Sender: FDA-Public Use
  Company Number: FR-009507513-1312FRA006185

PATIENT
  Age: 73 Year
  Sex: Male
  Weight: 85 kg

DRUGS (11)
  1. VICTRELIS [Suspect]
     Indication: HEPATITIS C
     Dosage: 2400 MG, QD
     Dates: start: 20110506, end: 20110528
  2. VIRAFERONPEG [Suspect]
     Indication: HEPATITIS C
     Dosage: 120 MICROGRAM, QW
     Dates: start: 20110409
  3. VIRAFERONPEG [Suspect]
     Dosage: 180 MICROGRAM, QW
     Dates: start: 20120217, end: 20120312
  4. RIBAVIRIN [Suspect]
     Dosage: 1200 MG, QD
     Dates: start: 20110409
  5. RIBAVIRIN [Suspect]
     Dosage: 800 MG, QD
     Dates: start: 20111216, end: 20120512
  6. SEROPRAM [Concomitant]
     Indication: DEPRESSION
     Dosage: 20 MG, QD
     Dates: start: 20110701, end: 20120312
  7. NEORECORMON [Concomitant]
     Indication: ANAEMIA
     Dosage: 30000 IU, QW
     Dates: start: 20110603, end: 20120306
  8. LEVOCARNIL [Concomitant]
     Indication: FATIGUE
     Dosage: 4 DF, QD
     Dates: start: 20110729, end: 2011
  9. SERMION [Concomitant]
     Indication: OSTEOARTHRITIS
     Dosage: 3 DF, QD
     Dates: start: 20051015
  10. MOTILIUM [Concomitant]
     Indication: NAUSEA
     Dosage: UNK
     Dates: start: 20110506, end: 2011
  11. FOLINORAL [Concomitant]
     Indication: ASTHENIA
     Dosage: 25 MG, QD
     Dates: start: 20110729, end: 2011

REACTIONS (3)
  - Dyspnoea exertional [Recovered/Resolved]
  - Convulsion [Recovered/Resolved]
  - Asthenia [Recovered/Resolved]
